FAERS Safety Report 8407705-6 (Version None)
Quarter: 2012Q2

REPORT INFORMATION
  Report Type: 
  Country: None (occurrence: None)
  Receive Date: 20120604
  Receipt Date: 20120529
  Transmission Date: 20120825
  Serious: No
  Sender: FDA-Public Use
  Company Number: US-BAYER-2012-054465

PATIENT
  Age: 70 Year
  Sex: Male
  Weight: 100 kg

DRUGS (7)
  1. FISH OIL [Concomitant]
  2. RESERVITOL [Concomitant]
  3. ATORVASTATIN CALCIUM [Concomitant]
  4. LISINOPRIL [Concomitant]
  5. VITAMIN D [Concomitant]
  6. ALEVE (CAPLET) [Suspect]
     Indication: MYALGIA
     Dosage: 1 DF, ONCE
     Route: 048
     Dates: start: 20120529
  7. ATENOLOL [Concomitant]

REACTIONS (1)
  - MYALGIA [None]
